FAERS Safety Report 11826098 (Version 3)
Quarter: 2015Q4

REPORT INFORMATION
  Report Type: Spontaneous
  Country: IT (occurrence: IT)
  Receive Date: 20151211
  Receipt Date: 20151228
  Transmission Date: 20160305
  Serious: Yes (Hospitalization, Other)
  Sender: FDA-Public Use
  Company Number: IT-ACTAVIS-2015-27337

PATIENT
  Age: 30 Year
  Sex: Female

DRUGS (7)
  1. HALOPERIDOL (UNKNOWN) [Suspect]
     Active Substance: HALOPERIDOL
     Indication: BIPOLAR I DISORDER
     Dosage: 4 MG TID
     Route: 065
     Dates: start: 2005, end: 201312
  2. FLUPHENAZINE DECANOATE. [Suspect]
     Active Substance: FLUPHENAZINE DECANOATE
     Dosage: 25 MG I.M.ONCE EVERY 21 DAYS
     Route: 030
     Dates: start: 201310, end: 201312
  3. CLONAZEPAM. [Concomitant]
     Active Substance: CLONAZEPAM
     Indication: BIPOLAR I DISORDER
     Dosage: 1 MG OD
     Route: 065
  4. LORAZEPAM. [Concomitant]
     Active Substance: LORAZEPAM
     Indication: BIPOLAR I DISORDER
     Dosage: 2.5 MG OD
     Route: 065
  5. FLUPHENAZINE DECANOATE. [Suspect]
     Active Substance: FLUPHENAZINE DECANOATE
     Indication: BIPOLAR I DISORDER
     Dosage: 25 MG I.M MONTHLY
     Route: 030
     Dates: start: 2005, end: 201312
  6. QUETIAPINE (UNKNOWN) [Suspect]
     Active Substance: QUETIAPINE
     Indication: BIPOLAR I DISORDER
     Dosage: 300 MG TID
     Route: 065
     Dates: start: 2005, end: 201312
  7. PALIPERIDONE (ACTAVIS LABORATORIES FL, INC.) [Suspect]
     Active Substance: PALIPERIDONE
     Indication: BIPOLAR I DISORDER
     Dosage: 6 MG OD
     Route: 065
     Dates: start: 201310, end: 201312

REACTIONS (1)
  - Neuroleptic malignant syndrome [Recovered/Resolved with Sequelae]

NARRATIVE: CASE EVENT DATE: 201310
